FAERS Safety Report 7627080-4 (Version None)
Quarter: 2011Q3

REPORT INFORMATION
  Report Type: 
  Country: None (occurrence: None)
  Receive Date: 20110721
  Receipt Date: 20110712
  Transmission Date: 20111222
  Serious: Yes (Hospitalization)
  Sender: FDA-Public Use
  Company Number: BR-ASTRAZENECA-2011SE41935

PATIENT
  Age: 69 Year
  Sex: Male
  Weight: 128 kg

DRUGS (21)
  1. NEXIUM [Suspect]
     Indication: OESOPHAGITIS
     Route: 048
     Dates: start: 20070101, end: 20110601
  2. BROMAZEPAM [Concomitant]
     Route: 048
  3. GALVUS [Concomitant]
     Dates: start: 20110101
  4. ASCORBIC ACID [Concomitant]
     Route: 048
  5. METFORMIN HYDROCHLORIDE [Concomitant]
     Dates: start: 20110101
  6. NEXIUM [Suspect]
     Indication: GASTRIC ULCER
     Route: 048
     Dates: start: 20070101, end: 20110601
  7. DOMPERIDONE [Concomitant]
     Dates: start: 20110601
  8. ALLOPURINOL [Concomitant]
     Dates: start: 20110101
  9. SPIRONOLACTONE [Concomitant]
     Indication: HYPERTENSION
     Route: 048
  10. ENALAPRIL MALEATE [Concomitant]
     Indication: HYPERTENSION
     Route: 048
  11. CENTRUM [Concomitant]
     Route: 048
  12. FUROSEMIDE [Concomitant]
     Indication: HYPERTENSION
     Route: 048
  13. ASPIRIN [Concomitant]
     Dates: start: 20100101
  14. FLUOXETINE [Concomitant]
     Route: 048
  15. TRILEPTAL [Concomitant]
     Dates: start: 20090101
  16. SEROQUEL [Suspect]
     Indication: BIPOLAR DISORDER
     Route: 048
     Dates: start: 20090101, end: 20110701
  17. SEROQUEL [Suspect]
     Route: 048
     Dates: start: 20110701
  18. CLONAZEPAM [Concomitant]
     Route: 048
  19. CARVEDILOL [Concomitant]
     Indication: HYPERTENSION
     Route: 048
  20. PANTOPRAZOLE [Concomitant]
     Dates: start: 20110601
  21. SIMVASTATIN [Concomitant]
     Dates: start: 20100101

REACTIONS (8)
  - ACUTE MYOCARDIAL INFARCTION [None]
  - BLOOD UREA INCREASED [None]
  - BLOOD GLUCOSE INCREASED [None]
  - BIPOLAR DISORDER [None]
  - OFF LABEL USE [None]
  - CATHETERISATION CARDIAC [None]
  - STRESS [None]
  - EMOTIONAL DISORDER [None]
